FAERS Safety Report 17287102 (Version 1)
Quarter: 2020Q1

REPORT INFORMATION
  Report Type: Report from Study
  Country: US (occurrence: US)
  Receive Date: 20200120
  Receipt Date: 20200120
  Transmission Date: 20200409
  Serious: Yes (Other)
  Sender: FDA-Public Use
  Company Number: US-ROCHE-2525180

PATIENT
  Sex: Female

DRUGS (5)
  1. RITUXAN [Suspect]
     Active Substance: RITUXIMAB
     Dosage: ONGOING:NO
     Route: 042
     Dates: start: 2015, end: 2015
  2. METOPROLOL. [Concomitant]
     Active Substance: METOPROLOL
     Indication: HYPERTENSION
     Dosage: ONGOING:YES
     Route: 048
  3. RITUXAN [Suspect]
     Active Substance: RITUXIMAB
     Indication: NON-HODGKIN^S LYMPHOMA
     Dosage: ONGOING:NO
     Route: 042
     Dates: start: 2012, end: 2014
  4. RITUXAN [Suspect]
     Active Substance: RITUXIMAB
     Route: 042
  5. IMBRUVICA [Concomitant]
     Active Substance: IBRUTINIB

REACTIONS (2)
  - Drug ineffective [Unknown]
  - Atrial fibrillation [Not Recovered/Not Resolved]

NARRATIVE: CASE EVENT DATE: 2015
